FAERS Safety Report 12567247 (Version 3)
Quarter: 2016Q4

REPORT INFORMATION
  Report Type: Spontaneous
  Country: US (occurrence: US)
  Receive Date: 20160718
  Receipt Date: 20161219
  Transmission Date: 20170207
  Serious: Yes (Other)
  Sender: FDA-Public Use
  Company Number: US-GLAXOSMITHKLINE-US2016102018

PATIENT
  Age: 75 Year
  Sex: Female

DRUGS (2)
  1. PERDIEM [Suspect]
     Active Substance: SENNOSIDES
     Indication: CONSTIPATION
     Dosage: UNK
     Route: 048
     Dates: start: 20160614
  2. PERDIEM [Suspect]
     Active Substance: SENNOSIDES
     Indication: DIVERTICULITIS

REACTIONS (2)
  - Off label use [Unknown]
  - Drug dependence [Not Recovered/Not Resolved]
